FAERS Safety Report 14258028 (Version 3)
Quarter: 2018Q4

REPORT INFORMATION
  Report Type: Spontaneous
  Country: US (occurrence: US)
  Receive Date: 20171207
  Receipt Date: 20181012
  Transmission Date: 20190204
  Serious: Yes (Other)
  Sender: FDA-Public Use
  Company Number: US-ASTRAZENECA-2017SF22043

PATIENT
  Age: 20539 Day
  Sex: Male
  Weight: 99.8 kg

DRUGS (24)
  1. NEXIUM [Suspect]
     Active Substance: ESOMEPRAZOLE MAGNESIUM
     Indication: GASTROOESOPHAGEAL REFLUX DISEASE
     Dosage: TAKE 1 CAPSULE EVERY DAY BY ORAL ROUTE FOR 90 DAYS.
     Route: 048
     Dates: start: 2008, end: 2015
  2. NEXIUM [Suspect]
     Active Substance: ESOMEPRAZOLE MAGNESIUM
     Indication: DYSPEPSIA
     Dosage: TAKE 1 CAPSULE EVERY DAY BY ORAL ROUTE FOR 90 DAYS.
     Route: 048
     Dates: start: 2008, end: 2015
  3. NEXIUM [Suspect]
     Active Substance: ESOMEPRAZOLE MAGNESIUM
     Indication: GASTROOESOPHAGEAL REFLUX DISEASE
     Route: 048
     Dates: start: 2014, end: 2015
  4. TRAMADOL HYDROCHLORIDE. [Concomitant]
     Active Substance: TRAMADOL HYDROCHLORIDE
     Dosage: TAKE 1 TABLET TWICE A DAY BY ORAL ROUTE AS NEEDED FOR 90 DAYS.
     Route: 048
     Dates: start: 20080501
  5. ESOMEPRAZOLE. [Concomitant]
     Active Substance: ESOMEPRAZOLE MAGNESIUM
     Dosage: 40.0MG UNKNOWN
     Route: 048
     Dates: start: 20151104
  6. ULTRAM [Concomitant]
     Active Substance: TRAMADOL HYDROCHLORIDE
     Dosage: TAKE 1 TABLET 3 TIMES A DAY BY ORAL ROUTE FOR 30 DAYS.
     Route: 048
     Dates: start: 20141219
  7. LISINOPRIL. [Concomitant]
     Active Substance: LISINOPRIL
     Dosage: TAKE 1 TABLET EVERY DAY BY ORAL ROUTE FOR 90 DAYS.
     Dates: start: 20080501
  8. LEVOTHYROXINE. [Concomitant]
     Active Substance: LEVOTHYROXINE
     Dosage: TAKE 1 TABLET EVERY DAY BY ORAL ROUTE IN THE MORNING FOR 90 DAYS.
     Dates: start: 20150710
  9. TOPROL XL [Concomitant]
     Active Substance: METOPROLOL SUCCINATE
     Dosage: TAKE 1 TABLET EVERY DAY BY ORAL ROUTE FOR 90 DAYS.
     Dates: start: 20150422
  10. AMBIEN [Concomitant]
     Active Substance: ZOLPIDEM TARTRATE
     Dosage: TAKE 1 TABLET EVERY DAY BY ORAL ROUTE AT BEDTIME FOR 30 DAYS.
     Route: 048
  11. POTASSIUM CHLORIDE. [Concomitant]
     Active Substance: POTASSIUM CHLORIDE
     Dosage: TAKE HALF TABLET DAILY.
     Route: 048
     Dates: start: 20141218
  12. RANITIDINE. [Concomitant]
     Active Substance: RANITIDINE
     Indication: GASTROOESOPHAGEAL REFLUX DISEASE
     Dates: start: 20180131, end: 20180320
  13. HYDROCHLOROTHIAZIDE. [Concomitant]
     Active Substance: HYDROCHLOROTHIAZIDE
     Indication: GASTROOESOPHAGEAL REFLUX DISEASE
     Dosage: 12.5MG UNKNOWN
     Route: 048
     Dates: start: 2016, end: 2018
  14. TYLENOL [Concomitant]
     Active Substance: ACETAMINOPHEN
     Indication: PAIN
     Route: 048
  15. METOPROLOL. [Concomitant]
     Active Substance: METOPROLOL
     Indication: GASTROOESOPHAGEAL REFLUX DISEASE
     Dosage: TAKE 1 TABLET EVERY DAY BY ORAL IN THE MORNING FOR 90 DAYS
     Dates: start: 20080501
  16. ZOLPIDEM [Concomitant]
     Active Substance: ZOLPIDEM\ZOLPIDEM TARTRATE
     Dosage: 10.0MG UNKNOWN
     Dates: start: 20150710
  17. PREVACID [Concomitant]
     Active Substance: LANSOPRAZOLE
     Dosage: 30.0MG UNKNOWN
     Dates: start: 20090812
  18. DICLOFENAC [Concomitant]
     Active Substance: DICLOFENAC
     Dosage: TAKE 1 TABLET EVERY DAY BY ORAL ROUTE FOR 90 DAYS.
     Route: 048
     Dates: start: 20141218
  19. NEXIUM [Suspect]
     Active Substance: ESOMEPRAZOLE MAGNESIUM
     Indication: DYSPEPSIA
     Route: 048
     Dates: start: 2014, end: 2015
  20. GEMFIBROZIL. [Concomitant]
     Active Substance: GEMFIBROZIL
     Indication: GASTROOESOPHAGEAL REFLUX DISEASE
     Dosage: TAKE 1 TABLET TWICE A DAY ORAL ROUTE FOR 90 DAYS.
     Dates: start: 20080501
  21. ALPRAZOLAM. [Concomitant]
     Active Substance: ALPRAZOLAM
     Dosage: TAKE 1 TABLET 3 TIMES A DAY BYORAL ROUTE FOR 90 DAYS.
     Dates: start: 20130111
  22. ASPIRIN. [Concomitant]
     Active Substance: ASPIRIN
     Dosage: TAKE 1 TABLET EVERY DAY BY ORAL ROUTE FOR 30 DAYS.
     Dates: start: 20150422
  23. POTASSIUM CHLORIDE. [Concomitant]
     Active Substance: POTASSIUM CHLORIDE
     Dosage: TAKE 1 TAKE EVERY DAY BY ORAL ROUTE AFTER MEALS FOR 90 DAYS
     Route: 048
     Dates: start: 20130322
  24. METOPROLOL. [Concomitant]
     Active Substance: METOPROLOL
     Indication: GASTROOESOPHAGEAL REFLUX DISEASE
     Dates: start: 2016, end: 2018

REACTIONS (1)
  - Chronic kidney disease [Not Recovered/Not Resolved]

NARRATIVE: CASE EVENT DATE: 20150710
